FAERS Safety Report 16958455 (Version 1)
Quarter: 2019Q4

REPORT INFORMATION
  Report Type: Report from Study
  Country: JP (occurrence: JP)
  Receive Date: 20191024
  Receipt Date: 20191024
  Transmission Date: 20200122
  Serious: Yes (Other)
  Sender: FDA-Public Use
  Company Number: JP-JNJFOC-20191012685

PATIENT

DRUGS (2)
  1. HALOPERIDOL. [Suspect]
     Active Substance: HALOPERIDOL
     Indication: NAUSEA
     Dosage: DAY 1 AND DAY 7
     Route: 065
  2. HALOPERIDOL. [Suspect]
     Active Substance: HALOPERIDOL
     Indication: DELIRIUM
     Dosage: DAY 2
     Route: 065

REACTIONS (10)
  - Hypertension [Unknown]
  - Constipation [Unknown]
  - Muscle rigidity [Unknown]
  - Dry mouth [Unknown]
  - Decreased appetite [Unknown]
  - Diarrhoea [Unknown]
  - Somnolence [Unknown]
  - Extrapyramidal disorder [Unknown]
  - Hypotension [Unknown]
  - Dizziness [Unknown]
